FAERS Safety Report 6753904-9 (Version None)
Quarter: 2010Q2

REPORT INFORMATION
  Report Type: 
  Country: None (occurrence: None)
  Receive Date: 20100603
  Receipt Date: 20100520
  Transmission Date: 20101027
  Serious: Yes (Other)
  Sender: FDA-Public Use
  Company Number: US-ELI_LILLY_AND_COMPANY-US200801006599

PATIENT
  Age: 14 Year
  Sex: Female
  Weight: 58.05 kg

DRUGS (6)
  1. STRATTERA [Suspect]
     Indication: TOURETTE'S DISORDER
     Dosage: 40 MG, EACH EVENING
     Dates: start: 20040101, end: 20070101
  2. STRATTERA [Suspect]
     Dosage: 60 MG, EACH MORNING
     Dates: start: 20070101, end: 20080101
  3. STRATTERA [Suspect]
     Dosage: 80 MG, EACH MORNING
     Dates: start: 20080101
  4. STRATTERA [Suspect]
     Dosage: 25 MG, 2/D
     Dates: start: 20090101
  5. LOVAZA [Concomitant]
  6. IRON [Concomitant]

REACTIONS (7)
  - EPISTAXIS [None]
  - HAEMOGLOBIN DECREASED [None]
  - HEADACHE [None]
  - HORMONE LEVEL ABNORMAL [None]
  - INSOMNIA [None]
  - MENORRHAGIA [None]
  - OFF LABEL USE [None]
